FAERS Safety Report 4407802-6 (Version None)
Quarter: 2004Q3

REPORT INFORMATION
  Report Type: 
  Country: None (occurrence: None)
  Receive Date: 20040721
  Receipt Date: 20040712
  Transmission Date: 20050211
  Serious: Yes (Life-Threatening, Hospitalization)
  Sender: FDA-Public Use
  Company Number: 206789

PATIENT
  Age: 78 Year
  Sex: Male
  Weight: 78.9 kg

DRUGS (6)
  1. XOLAIR [Suspect]
     Indication: ASTHMA
     Dosage: 225 MG, Q2W, SUBCUTANEOUS
     Route: 058
     Dates: start: 20031104
  2. PREDNISONE (PREDNISONE) [Concomitant]
  3. BETA-BLOCKER, NOS (BETA CLOCKERS NOS) [Concomitant]
  4. UNIPHYL [Concomitant]
  5. PLAVIX [Concomitant]
  6. PREVACID [Concomitant]

REACTIONS (4)
  - ANAPHYLACTIC REACTION [None]
  - ASTHMA [None]
  - CONVULSION [None]
  - FATIGUE [None]
